FAERS Safety Report 19674267 (Version 1)
Quarter: 2021Q3

REPORT INFORMATION
  Report Type: Report from Study
  Country: None (occurrence: AR)
  Receive Date: 20210809
  Receipt Date: 20210809
  Transmission Date: 20211014
  Serious: Yes (Other)
  Sender: FDA-Public Use
  Company Number: AR-ABBVIE-21K-007-4029705-00

PATIENT
  Sex: Female

DRUGS (1)
  1. HUMIRA [Suspect]
     Active Substance: ADALIMUMAB
     Indication: HIDRADENITIS
     Route: 058
     Dates: start: 20180529

REACTIONS (4)
  - Mobility decreased [Recovering/Resolving]
  - Muscular weakness [Unknown]
  - Fistula [Recovering/Resolving]
  - Hypotonia [Recovering/Resolving]

NARRATIVE: CASE EVENT DATE: 2020
